FAERS Safety Report 7391837-8 (Version None)
Quarter: 2011Q2

REPORT INFORMATION
  Report Type: 
  Country: None (occurrence: None)
  Receive Date: 20110404
  Receipt Date: 20110323
  Transmission Date: 20111010
  Serious: Yes (Death)
  Sender: FDA-Public Use
  Company Number: JP-ROCHE-767991

PATIENT
  Age: 42 Year
  Sex: Male

DRUGS (3)
  1. METHYLPREDNISOLONE [Concomitant]
     Dosage: DOSE FORM: UNCERTAINTY
     Route: 065
  2. TACROLIMUS HYDRATE [Concomitant]
     Dosage: DOSAGE IS UNCERTAIN. DOSAGE FORM: UNCERTAINTY.
     Route: 065
  3. CELLCEPT [Suspect]
     Indication: DEMYELINATING POLYNEUROPATHY
     Dosage: DOSAGE IS UNCERTAIN.
     Route: 048

REACTIONS (3)
  - CYTOMEGALOVIRUS VIRAEMIA [None]
  - CYSTITIS HAEMORRHAGIC [None]
  - ENDOCARDITIS [None]
